FAERS Safety Report 5196119-0 (Version None)
Quarter: 2006Q4

REPORT INFORMATION
  Report Type: 
  Country: None (occurrence: None)
  Receive Date: 20061222
  Receipt Date: 20061016
  Transmission Date: 20070319
  Serious: Yes (Other)
  Sender: FDA-Public Use
  Company Number: 2006RR-04175

PATIENT
  Age: 6 Month
  Sex: Male
  Weight: 6.9 kg

DRUGS (9)
  1. FUROSEMIDE [Suspect]
     Dosage: 7 MG, QID, ORAL
     Route: 048
  2. CHLORAL HYDRATE [Suspect]
     Dosage: 30 MG, QID, ORAL
     Route: 048
  3. AMPHOTERICIN B [Concomitant]
  4. COLISTIN SULPHATE [Concomitant]
  5. OMEPRAZOLE [Concomitant]
  6. ACETAMINOPHEN [Concomitant]
  7. ALITIZIDE-SPIRONOLACTONE, ALTIZIDE) [Concomitant]
  8. LEVOTHYROXINE SODIUM [Concomitant]
  9. TOBRAMYCIN [Concomitant]

REACTIONS (4)
  - BLOOD THYROID STIMULATING HORMONE INCREASED [None]
  - COLD SWEAT [None]
  - FEELING COLD [None]
  - HEART RATE INCREASED [None]
